FAERS Safety Report 10255875 (Version 1)
Quarter: 2014Q2

REPORT INFORMATION
  Report Type: Report from Study
  Country: US (occurrence: US)
  Receive Date: 20140624
  Receipt Date: 20140624
  Transmission Date: 20141212
  Serious: Yes (Other)
  Sender: FDA-Public Use
  Company Number: US-ACTELION-A-US2014-100806

PATIENT
  Age: 66 Year
  Sex: Male

DRUGS (19)
  1. TRACLEER [Suspect]
     Indication: PULMONARY ARTERIAL HYPERTENSION
     Dosage: 375 MG, QD
     Route: 048
     Dates: start: 201306
  2. SILDENAFIL [Concomitant]
     Dosage: 20 MG, UNK
  3. VALSARTAN [Concomitant]
     Dosage: 320 MG, UNK
  4. PRAVASTATIN [Concomitant]
     Dosage: 40 MG, UNK
  5. POLYETHYLENE [Concomitant]
     Dosage: 17 G, UNK
  6. MINOXIDIL [Concomitant]
     Dosage: 7 MG, UNK
  7. NIACIN [Concomitant]
     Dosage: 500 MG, UNK
  8. METOPROLOL [Concomitant]
     Dosage: 100 MG, UNK
  9. METFORMIN [Concomitant]
     Dosage: 1000 MG, BID
  10. LISINOPRIL [Concomitant]
     Dosage: 20 MG, UNK
  11. GLYBURIDE [Concomitant]
     Dosage: 10 MG, UNK
  12. GABAPENTIN [Concomitant]
     Dosage: 900 MG, UNK
  13. FUROSEMIDE [Concomitant]
     Dosage: 20 MG, BID
  14. FERROUS SULFATE [Concomitant]
     Dosage: 325 MG, UNK
  15. DULOXETINE [Concomitant]
     Dosage: 30 MG, UNK
  16. CLOPIDOGREL [Concomitant]
     Dosage: 75 MG, UNK
  17. CLONIDINE [Concomitant]
     Dosage: 3 MG, UNK
  18. ALFUZOSIN [Concomitant]
     Dosage: 10 MG, UNK
  19. AMLODIPINE [Concomitant]
     Dosage: 10 MG, UNK

REACTIONS (4)
  - Transient ischaemic attack [Recovered/Resolved]
  - Amnesia [Recovered/Resolved]
  - Dysarthria [Recovered/Resolved]
  - Muscle twitching [Recovered/Resolved]
